FAERS Safety Report 4928469-4 (Version None)
Quarter: 2006Q1

REPORT INFORMATION
  Report Type: 
  Country: None (occurrence: None)
  Receive Date: 20060223
  Receipt Date: 20060213
  Transmission Date: 20060701
  Serious: No
  Sender: FDA-Public Use
  Company Number: B0412734A

PATIENT
  Age: 52 Year
  Sex: Male

DRUGS (4)
  1. RETROVIR [Suspect]
     Indication: HIV INFECTION
     Dosage: 200 MG/THREE TIMES PER DAY/
     Dates: start: 19910601
  2. LAMIVUDINE [Concomitant]
  3. DIDANOSINE [Concomitant]
  4. DAPSONE [Concomitant]

REACTIONS (4)
  - ARTHRALGIA [None]
  - MITOCHONDRIAL MYOPATHY [None]
  - MUSCLE ATROPHY [None]
  - OSTEONECROSIS [None]
